FAERS Safety Report 6790808-X (Version None)
Quarter: 2010Q2

REPORT INFORMATION
  Report Type: 
  Country: None (occurrence: None)
  Receive Date: 20100624
  Receipt Date: 20100611
  Transmission Date: 20101027
  Serious: Yes (Other)
  Sender: FDA-Public Use
  Company Number: US-ELI_LILLY_AND_COMPANY-US201006003987

PATIENT
  Sex: Female

DRUGS (4)
  1. FORTEO [Suspect]
     Indication: OSTEOPOROSIS
     Dosage: 20 UG, DAILY (1/D)
  2. FORTEO [Suspect]
     Dosage: 20 UG, DAILY (1/D)
     Dates: start: 20081128
  3. MIACALCIN [Concomitant]
     Route: 045
  4. POTASSIUM [Concomitant]

REACTIONS (16)
  - ARTHROPATHY [None]
  - ASTHENIA [None]
  - BLADDER PROLAPSE [None]
  - BONE DENSITY DECREASED [None]
  - DEVICE DISLOCATION [None]
  - FOOT DEFORMITY [None]
  - FOOT OPERATION [None]
  - GASTROOESOPHAGEAL REFLUX DISEASE [None]
  - HIP FRACTURE [None]
  - INFECTION [None]
  - OEDEMA PERIPHERAL [None]
  - OFF LABEL USE [None]
  - PELVIC FRACTURE [None]
  - SCIATICA [None]
  - URINARY INCONTINENCE [None]
  - UTERINE PROLAPSE [None]
